FAERS Safety Report 9143141 (Version 2)
Quarter: 2013Q2

REPORT INFORMATION
  Report Type: Spontaneous
  Country: US (occurrence: US)
  Receive Date: 20130306
  Receipt Date: 20130408
  Transmission Date: 20140414
  Serious: Yes (Other)
  Sender: FDA-Public Use
  Company Number: US-SANOFI-AVENTIS-2013SA021740

PATIENT
  Age: 64 Year
  Sex: Male
  Weight: 92 kg

DRUGS (7)
  1. UROXATRAL [Suspect]
     Indication: PROSTATIC DISORDER
     Route: 065
     Dates: start: 20090303
  2. LOVASTATIN [Concomitant]
     Indication: BLOOD CHOLESTEROL
     Dates: start: 2009
  3. ALLOPURINOL [Concomitant]
     Indication: GOUT
     Dates: start: 2008
  4. NEFAZODONE [Concomitant]
     Indication: DEPRESSION
     Dates: start: 2008
  5. OXYCODONE [Concomitant]
     Indication: ARTHRITIS
     Dates: start: 2008
  6. ZOLPIDEM [Concomitant]
     Indication: INSOMNIA
     Dates: start: 2008
  7. CLONAZEPAM [Concomitant]
     Indication: ANXIETY
     Dates: start: 2008

REACTIONS (5)
  - Renal cancer [Unknown]
  - Breast cancer [Unknown]
  - Urinary incontinence [Unknown]
  - Pollakiuria [Unknown]
  - Stress [Unknown]
